FAERS Safety Report 8202398-5 (Version None)
Quarter: 2012Q1

REPORT INFORMATION
  Report Type: 
  Country: None (occurrence: None)
  Receive Date: 20120308
  Receipt Date: 20120222
  Transmission Date: 20120608
  Serious: Yes (Congenital Anomaly)
  Sender: FDA-Public Use
  Company Number: UCM201202-000009

PATIENT

DRUGS (2)
  1. LAMOTRIGINE [Suspect]
     Dosage: 1000 MG, TRANSPLACENTAL
     Route: 064
  2. TOPIRAMATE [Suspect]
     Dosage: 600 MG, TRANSPLACENTAL
     Route: 064

REACTIONS (2)
  - CHORDEE [None]
  - MATERNAL DRUGS AFFECTING FOETUS [None]
